FAERS Safety Report 13908635 (Version 1)
Quarter: 2017Q3

REPORT INFORMATION
  Report Type: Spontaneous
  Country: US (occurrence: US)
  Receive Date: 20170827
  Receipt Date: 20170827
  Transmission Date: 20171127
  Serious: No
  Sender: FDA-Public Use
  Company Number: GXBR2017US001862

PATIENT
  Sex: Female

DRUGS (3)
  1. OMEPRAZOLE DELAYED RELEASE CAPSULES [Suspect]
     Active Substance: OMEPRAZOLE
     Dosage: 1 DF, TID
     Route: 065
     Dates: start: 20170604
  2. OMEPRAZOLE DELAYED RELEASE CAPSULES [Suspect]
     Active Substance: OMEPRAZOLE
     Indication: PRODUCT USED FOR UNKNOWN INDICATION
     Dosage: 1 DF, QD
     Route: 065
  3. OMEPRAZOLE DELAYED RELEASE CAPSULES [Suspect]
     Active Substance: OMEPRAZOLE
     Dosage: 1 DF, BID
     Route: 065

REACTIONS (2)
  - Abdominal discomfort [Not Recovered/Not Resolved]
  - Drug ineffective [Unknown]
